FAERS Safety Report 5258165-8 (Version None)
Quarter: 2007Q1

REPORT INFORMATION
  Report Type: 
  Country: None (occurrence: None)
  Receive Date: 20070307
  Receipt Date: 20070227
  Transmission Date: 20070707
  Serious: Yes (Hospitalization)
  Sender: FDA-Public Use
  Company Number: US-PFIZER INC-2007015505

PATIENT
  Sex: Male
  Weight: 71 kg

DRUGS (5)
  1. PREDNISONE [Suspect]
     Route: 048
  2. DAUNOMYCIN [Concomitant]
     Indication: ACUTE LYMPHOCYTIC LEUKAEMIA
     Route: 042
     Dates: start: 20050514, end: 20050604
  3. ELSPAR [Concomitant]
     Dates: end: 20050610
  4. METHOTREXATE [Concomitant]
     Dosage: DAILY DOSE:12.5MG
     Route: 037
  5. VINCRISTINE SULFATE [Concomitant]
     Dosage: DAILY DOSE:1.4MG/M2
     Route: 042
     Dates: end: 20050606

REACTIONS (2)
  - ANXIETY [None]
  - DEPRESSION [None]
